FAERS Safety Report 5339427-2 (Version None)
Quarter: 2007Q2

REPORT INFORMATION
  Report Type: 
  Country: None (occurrence: None)
  Receive Date: 20070404
  Receipt Date: 20060920
  Transmission Date: 20071010
  Serious: Yes (Other)
  Sender: FDA-Public Use
  Company Number: 2006090985

PATIENT
  Age: 40 Year
  Sex: Female

DRUGS (3)
  1. GEODON [Suspect]
     Dosage: 180 MG (60 MG), ORAL
     Route: 048
  2. LITHIUM CARBONATE [Concomitant]
  3. CLONAPIN (CLONAZEPAM) [Concomitant]

REACTIONS (2)
  - BRUXISM [None]
  - TREMOR [None]
